FAERS Safety Report 7330693-0 (Version None)
Quarter: 2011Q1

REPORT INFORMATION
  Report Type: 
  Country: None (occurrence: None)
  Receive Date: 20110304
  Receipt Date: 20110222
  Transmission Date: 20110831
  Serious: Yes (Hospitalization, Other)
  Sender: FDA-Public Use
  Company Number: US-BAYER-2011-017071

PATIENT
  Sex: Female

DRUGS (1)
  1. MIRENA [Suspect]
     Indication: CONTRACEPTION
     Dosage: UNK
     Dates: start: 20080301

REACTIONS (11)
  - LUPUS-LIKE SYNDROME [None]
  - VISUAL FIELD DEFECT [None]
  - MIXED CONNECTIVE TISSUE DISEASE [None]
  - VISUAL IMPAIRMENT [None]
  - CEREBROVASCULAR ACCIDENT [None]
  - BREAST MASS [None]
  - RASH MACULAR [None]
  - PAIN [None]
  - SCLERODERMA [None]
  - ARTHRALGIA [None]
  - PULMONARY HYPERTENSION [None]
